FAERS Safety Report 10196920 (Version 1)
Quarter: 2014Q2

REPORT INFORMATION
  Report Type: Spontaneous
  Country: JP (occurrence: JP)
  Receive Date: 20140527
  Receipt Date: 20140527
  Transmission Date: 20141212
  Serious: Yes (Hospitalization)
  Sender: FDA-Public Use
  Company Number: JP-009507513-1405JPN010479

PATIENT
  Sex: 0

DRUGS (1)
  1. ZETIA TABLETS 10MG [Suspect]
     Indication: HYPERCHOLESTEROLAEMIA
     Dosage: DAILY DOSAGE UNKNOWN
     Route: 048

REACTIONS (1)
  - Pyelonephritis [Recovered/Resolved]
